FAERS Safety Report 22252669 (Version 1)
Quarter: 2023Q2

REPORT INFORMATION
  Report Type: Spontaneous
  Country: US (occurrence: US)
  Receive Date: 20230426
  Receipt Date: 20230426
  Transmission Date: 20230722
  Serious: Yes (Other)
  Sender: FDA-Public Use
  Company Number: US-BEH-2023157857

PATIENT
  Sex: Male

DRUGS (1)
  1. HIZENTRA [Suspect]
     Active Substance: HUMAN IMMUNOGLOBULIN G
     Indication: Product used for unknown indication
     Dosage: UNK
     Route: 065
     Dates: start: 2020

REACTIONS (7)
  - Hypersensitivity [Unknown]
  - Pyrexia [Unknown]
  - Tremor [Unknown]
  - Dyspnoea [Unknown]
  - Injection site pain [Unknown]
  - Injection site mass [Unknown]
  - Subcutaneous emphysema [Unknown]
